FAERS Safety Report 8391505-X (Version None)
Quarter: 2012Q1

REPORT INFORMATION
  Report Type: 
  Country: None (occurrence: None)
  Receive Date: 20120323
  Receipt Date: 20110328
  Transmission Date: 20120608
  Serious: Yes (Other)
  Sender: FDA-Public Use
  Company Number: 163-21880-11033343

PATIENT
  Age: 86 Year
  Sex: Female
  Weight: 47.17 kg

DRUGS (1)
  1. REVLIMID [Suspect]
     Indication: MULTIPLE MYELOMA
     Dosage: 10 MG, QD, PO
     Route: 048
     Dates: start: 20101101

REACTIONS (3)
  - INFECTION [None]
  - NASAL CONGESTION [None]
  - COUGH [None]
